FAERS Safety Report 14120301 (Version 1)
Quarter: 2017Q4

REPORT INFORMATION
  Report Type: Spontaneous
  Country: US (occurrence: None)
  Receive Date: 20171024
  Receipt Date: 20171024
  Transmission Date: 20180321
  Serious: No
  Sender: FDA-Public Use
  Company Number: None

PATIENT

DRUGS (2)
  1. OLOPATADINE HCL [Suspect]
     Active Substance: OLOPATADINE HYDROCHLORIDE
  2. ACETIC ACID. [Suspect]
     Active Substance: ACETIC ACID

REACTIONS (3)
  - Eye pain [None]
  - Incorrect route of drug administration [None]
  - Crying [None]
